FAERS Safety Report 21034289 (Version 15)
Quarter: 2022Q4

REPORT INFORMATION
  Report Type: Report from Study
  Country: BR (occurrence: None)
  Receive Date: 20220701
  Receipt Date: 20221206
  Transmission Date: 20230113
  Serious: Yes (Hospitalization)
  Sender: FDA-Public Use
  Company Number: BR-ROCHE-3125939

PATIENT
  Age: 12 Year
  Sex: Female
  Weight: 42.1 kg

DRUGS (79)
  1. OBINUTUZUMAB [Suspect]
     Active Substance: OBINUTUZUMAB
     Indication: Lupus nephritis
     Dosage: START DATE OF MOST RECENT DOSE OF STUDY DRUG PRIOR TO AE/SAE: 26-MAY-2022 12:00 PM?END DATE OF MOST
     Route: 042
     Dates: start: 20220512
  2. MYCOPHENOLATE MOFETIL [Suspect]
     Active Substance: MYCOPHENOLATE MOFETIL
     Indication: Lupus nephritis
     Dosage: ON 23/JUN/2022 AND 25/JUN/2022, 09/AUG/2022, 02/SEP/2022 AT 9:00 AM, RECEIVED MOST RECENT DOSE 1500
     Route: 048
     Dates: start: 20220512
  3. SODIUM BICARBONATE [Concomitant]
     Active Substance: SODIUM BICARBONATE
     Dosage: REPLACEMENT FOR LOSSES
     Route: 048
     Dates: start: 2020, end: 20220911
  4. SODIUM BICARBONATE [Concomitant]
     Active Substance: SODIUM BICARBONATE
     Route: 048
     Dates: start: 20220912, end: 20220923
  5. SODIUM BICARBONATE [Concomitant]
     Active Substance: SODIUM BICARBONATE
     Dosage: LOSS?PREVENTION
     Route: 048
     Dates: start: 20220924
  6. OMEPRAZOLE [Concomitant]
     Active Substance: OMEPRAZOLE
     Route: 048
     Dates: start: 2020
  7. CAPTOPRIL [Concomitant]
     Active Substance: CAPTOPRIL
     Indication: Proteinuria
     Route: 048
     Dates: start: 20220428, end: 20220606
  8. CAPTOPRIL [Concomitant]
     Active Substance: CAPTOPRIL
     Indication: Hypertension
     Route: 048
     Dates: start: 20220607, end: 20220712
  9. CAPTOPRIL [Concomitant]
     Active Substance: CAPTOPRIL
     Route: 048
     Dates: start: 20220712, end: 20220802
  10. ATENOLOL [Concomitant]
     Active Substance: ATENOLOL
     Indication: Hypertension
     Route: 048
     Dates: start: 20220429, end: 20220622
  11. ATENOLOL [Concomitant]
     Active Substance: ATENOLOL
     Route: 048
     Dates: start: 20220623, end: 20220711
  12. ATENOLOL [Concomitant]
     Active Substance: ATENOLOL
     Route: 048
     Dates: start: 20220712, end: 20220906
  13. ATENOLOL [Concomitant]
     Active Substance: ATENOLOL
     Route: 048
     Dates: start: 20220907
  14. HYDROCHLOROTHIAZIDE [Concomitant]
     Active Substance: HYDROCHLOROTHIAZIDE
     Indication: Oedema
     Dosage: DECREASE IN EDEMA
     Route: 048
     Dates: start: 20211118, end: 20220623
  15. HYDROCHLOROTHIAZIDE [Concomitant]
     Active Substance: HYDROCHLOROTHIAZIDE
     Dosage: DOSE 25 TABLETS
     Route: 048
     Dates: start: 20220624, end: 20220801
  16. HYDROCHLOROTHIAZIDE [Concomitant]
     Active Substance: HYDROCHLOROTHIAZIDE
     Route: 048
     Dates: start: 20220802, end: 20220901
  17. HYDROCHLOROTHIAZIDE [Concomitant]
     Active Substance: HYDROCHLOROTHIAZIDE
     Route: 048
     Dates: start: 20220902, end: 20220923
  18. HYDROCHLOROTHIAZIDE [Concomitant]
     Active Substance: HYDROCHLOROTHIAZIDE
     Route: 048
     Dates: start: 20220924, end: 20220928
  19. HYDROCHLOROTHIAZIDE [Concomitant]
     Active Substance: HYDROCHLOROTHIAZIDE
     Route: 048
     Dates: start: 20220929
  20. OSCAL D [Concomitant]
     Active Substance: CALCIUM CARBONATE\CHOLECALCIFEROL
     Dosage: 1 TABLET
     Route: 048
     Dates: start: 20220429
  21. METHYLPREDNISOLONE [Concomitant]
     Active Substance: METHYLPREDNISOLONE
     Indication: Lupus nephritis
     Route: 042
     Dates: start: 20220526, end: 20220526
  22. METHYLPREDNISOLONE [Concomitant]
     Active Substance: METHYLPREDNISOLONE
     Route: 042
     Dates: start: 20220915, end: 20220919
  23. METHYLPREDNISOLONE [Concomitant]
     Active Substance: METHYLPREDNISOLONE
     Route: 042
     Dates: start: 20220920, end: 20220920
  24. METHYLPREDNISOLONE [Concomitant]
     Active Substance: METHYLPREDNISOLONE
     Route: 042
     Dates: start: 20221027, end: 20221027
  25. ACETAMINOPHEN [Concomitant]
     Active Substance: ACETAMINOPHEN
     Route: 048
     Dates: start: 20220526, end: 20220526
  26. ACETAMINOPHEN [Concomitant]
     Active Substance: ACETAMINOPHEN
     Route: 048
     Dates: start: 20221027, end: 20221027
  27. HYDROXYCHLOROQUINE [Concomitant]
     Active Substance: HYDROXYCHLOROQUINE
     Route: 048
     Dates: start: 20191219
  28. BUTYLSCOPOLAMINE BROMIDE [Concomitant]
     Active Substance: BUTYLSCOPOLAMINE BROMIDE
     Dosage: DOSE: 35 OTHER
     Route: 048
     Dates: start: 20220605, end: 20220606
  29. ONDANSETRON HYDROCHLORIDE [Concomitant]
     Active Substance: ONDANSETRON HYDROCHLORIDE
     Route: 048
     Dates: start: 20220605, end: 20220605
  30. AMLODIPINE [Concomitant]
     Active Substance: AMLODIPINE BESYLATE
     Indication: Hypertension
     Route: 048
     Dates: start: 20220512
  31. PREDNISONE [Concomitant]
     Active Substance: PREDNISONE
     Indication: Lupus nephritis
     Route: 048
     Dates: start: 20220512, end: 20220525
  32. PREDNISONE [Concomitant]
     Active Substance: PREDNISONE
     Route: 048
     Dates: start: 20220527, end: 20220606
  33. PREDNISONE [Concomitant]
     Active Substance: PREDNISONE
     Route: 048
     Dates: start: 20220607, end: 20220622
  34. PREDNISONE [Concomitant]
     Active Substance: PREDNISONE
     Route: 048
     Dates: start: 20220623, end: 20220726
  35. PREDNISONE [Concomitant]
     Active Substance: PREDNISONE
     Route: 048
     Dates: start: 20220727, end: 20220914
  36. PREDNISONE [Concomitant]
     Active Substance: PREDNISONE
     Route: 048
     Dates: start: 20220925, end: 20220928
  37. PREDNISONE [Concomitant]
     Active Substance: PREDNISONE
     Route: 048
     Dates: start: 20220929
  38. PREDNISONE [Concomitant]
     Active Substance: PREDNISONE
     Route: 048
     Dates: start: 20220921, end: 20220923
  39. TETANUS TOXOID ADSORBED (VACCINE) [Concomitant]
     Active Substance: CLOSTRIDIUM TETANI TOXOID ANTIGEN (FORMALDEHYDE INACTIVATED)
     Route: 065
     Dates: start: 20110426
  40. PNEUMOCOCCAL VACCINE POLYVALENT NOS [Concomitant]
     Active Substance: PNEUMOCOCCAL VACCINE POLYVALENT
     Route: 065
     Dates: start: 20111113
  41. DIPHTHERIA TOXOID NOS [Concomitant]
     Active Substance: CORYNEBACTERIUM DIPHTHERIAE TOXOID ANTIGEN (FORMALDEHYDE INACTIVATED)
     Route: 065
     Dates: start: 20101027
  42. INFLUENZA VIRUS VACCINE [Concomitant]
     Active Substance: INFLUENZA VIRUS VACCINE
     Route: 065
     Dates: start: 20210706
  43. VARICELLA-ZOSTER VIRUS STRAIN OKA/MERCK LIVE ANTIGEN [Concomitant]
     Active Substance: VARICELLA-ZOSTER VIRUS STRAIN OKA/MERCK LIVE ANTIGEN
     Route: 065
     Dates: start: 20101027
  44. MEASLES VIRUS VACCINE, LIVE [Concomitant]
     Active Substance: MEASLES VIRUS STRAIN ENDERS^ ATTENUATED EDMONSTON LIVE ANTIGEN
     Route: 065
     Dates: start: 20141108
  45. MUMPS VACCINE [Concomitant]
     Active Substance: MUMPS VIRUS STRAIN B LEVEL JERYL LYNN LIVE ANTIGEN
     Route: 065
     Dates: start: 20141108
  46. RUBELLA VIRUS VACCINE LIVE NOS [Concomitant]
     Active Substance: RUBELLA VIRUS STRAIN WISTAR RA 27/3 LIVE ANTIGEN
     Route: 065
     Dates: start: 20141108
  47. HEPATITIS B VIRUS VACCINE [Concomitant]
     Active Substance: HEPATITIS B VIRUS VACCINE
     Route: 065
     Dates: start: 20101027
  48. BCG VACCINE [Concomitant]
     Active Substance: BCG VACCINE
     Route: 065
     Dates: start: 20100411
  49. POLIOMYELITIS VACCINE NOS [Concomitant]
     Active Substance: POLIOMYELITIS VACCINE
     Route: 048
     Dates: start: 20141108
  50. DIPHENHYDRAMINE HYDROCHLORIDE [Concomitant]
     Active Substance: DIPHENHYDRAMINE HYDROCHLORIDE
     Route: 042
     Dates: start: 20220526, end: 20220526
  51. DIPHENHYDRAMINE HYDROCHLORIDE [Concomitant]
     Active Substance: DIPHENHYDRAMINE HYDROCHLORIDE
     Route: 042
     Dates: start: 20221027, end: 20221027
  52. CEFTRIAXONE [Concomitant]
     Active Substance: CEFTRIAXONE
     Indication: Gastroenteritis
     Route: 042
     Dates: start: 20220623, end: 20220702
  53. METRONIDAZOLE [Concomitant]
     Active Substance: METRONIDAZOLE
     Indication: Gastroenteritis
     Route: 042
     Dates: start: 20220623, end: 20220629
  54. TRIBASIC CALCIUM PHOSPHATE [Concomitant]
     Active Substance: TRIBASIC CALCIUM PHOSPHATE
     Indication: Lupus nephritis
     Route: 048
     Dates: start: 20220623, end: 20220702
  55. DIPYRONE [Concomitant]
     Active Substance: DIPYRONE
     Indication: Pyrexia
     Dosage: DOSE 30 OTHER
     Route: 048
     Dates: start: 20220728, end: 20220730
  56. DIPYRONE [Concomitant]
     Active Substance: DIPYRONE
     Dosage: DOSE 30 OTHER
     Route: 048
     Dates: start: 20220909, end: 20220909
  57. DIPYRONE [Concomitant]
     Active Substance: DIPYRONE
     Dosage: DOSE 30 OTHER
     Route: 048
     Dates: start: 20220911, end: 20220911
  58. DIPYRONE [Concomitant]
     Active Substance: DIPYRONE
     Dosage: DOSE 30 OTHER
     Route: 048
     Dates: start: 20220913, end: 20220915
  59. TRAMADOL [Concomitant]
     Active Substance: TRAMADOL
     Dates: end: 2022
  60. NUBAIN [Concomitant]
     Active Substance: NALBUPHINE HYDROCHLORIDE
     Dates: end: 2022
  61. SULFAMETHOXAZOLE\TRIMETHOPRIM [Concomitant]
     Active Substance: SULFAMETHOXAZOLE\TRIMETHOPRIM
     Route: 048
     Dates: start: 20220624, end: 20220702
  62. ERGOCALCIFEROL [Concomitant]
     Active Substance: ERGOCALCIFEROL
     Route: 048
     Dates: start: 20200115, end: 20220623
  63. ERGOCALCIFEROL [Concomitant]
     Active Substance: ERGOCALCIFEROL
     Route: 048
     Dates: start: 20220703
  64. SACCHAROMYCES CEREVISIAE [Concomitant]
     Active Substance: SACCHAROMYCES CEREVISIAE
     Dosage: 1 OTHER
     Route: 048
     Dates: start: 20220802, end: 20220804
  65. PIPERACILLIN AND TAZOBACTAM [Concomitant]
     Active Substance: PIPERACILLIN SODIUM\TAZOBACTAM SODIUM
     Route: 042
     Dates: start: 20220902, end: 20220914
  66. TEICOPLANIN [Concomitant]
     Active Substance: TEICOPLANIN
     Route: 042
     Dates: start: 20220902, end: 20220914
  67. FLUCONAZOLE [Concomitant]
     Active Substance: FLUCONAZOLE
     Route: 042
     Dates: start: 20220911, end: 20220914
  68. MICAFUNGIN [Concomitant]
     Active Substance: MICAFUNGIN
     Dosage: INDICATION INFECTED ULCER TREATMENT
     Route: 042
     Dates: start: 20220915, end: 20220922
  69. MEROPENEM [Concomitant]
     Active Substance: MEROPENEM
     Dosage: INDICATION INFECTED ULCER TREATMENT
     Route: 042
     Dates: start: 20220915, end: 20220922
  70. ENALAPRIL [Concomitant]
     Active Substance: ENALAPRIL
     Indication: Proteinuria
     Route: 048
     Dates: start: 20220803
  71. ENALAPRIL [Concomitant]
     Active Substance: ENALAPRIL
     Indication: Hypertension
  72. BACTRIM [Concomitant]
     Active Substance: SULFAMETHOXAZOLE\TRIMETHOPRIM
     Indication: Prophylaxis
     Dosage: TRIMETHOPRIM 40MG
     Route: 048
     Dates: start: 20220913, end: 20220923
  73. SACCHAROMYCES CEREVISIAE [Concomitant]
     Active Substance: SACCHAROMYCES CEREVISIAE
     Indication: Diarrhoea
     Route: 048
     Dates: start: 20220731, end: 20220802
  74. PREDNISOLONE [Concomitant]
     Active Substance: PREDNISOLONE
     Indication: Lupus nephritis
     Route: 048
     Dates: start: 20220921, end: 20220924
  75. MAGNESIUM GLYCINATE [Concomitant]
     Active Substance: MAGNESIUM GLYCINATE
     Indication: Prophylaxis
     Dosage: MAGNESIUM GLYCINATE 722,2 MG
     Route: 048
     Dates: start: 20220912, end: 20220924
  76. VITAMIN B6 [Concomitant]
     Active Substance: PYRIDOXINE HYDROCHLORIDE
     Indication: Prophylaxis
     Route: 048
     Dates: start: 20220912, end: 20220924
  77. SIMETHICONE (DIMETHICONE) [Concomitant]
     Active Substance: DIMETHICONE
     Indication: Abdominal discomfort
     Dosage: 39 OTHER
     Route: 048
     Dates: start: 20220926, end: 20220926
  78. ENTEROGERMINA [BACILLUS CLAUSII] [Concomitant]
     Indication: Prophylaxis
     Route: 048
     Dates: start: 20220927, end: 20220927
  79. DIPYRONE [Concomitant]
     Active Substance: DIPYRONE
     Indication: Abdominal discomfort
     Route: 048

REACTIONS (7)
  - Anal fissure [Recovered/Resolved]
  - Leukopenia [Recovered/Resolved]
  - Granulocytopenia [Recovered/Resolved]
  - Lymphopenia [Recovered/Resolved]
  - Hypogammaglobulinaemia [Recovering/Resolving]
  - Skin ulcer [Recovered/Resolved]
  - Vulval ulceration [Recovered/Resolved]

NARRATIVE: CASE EVENT DATE: 20220623
